FAERS Safety Report 4598514-7 (Version None)
Quarter: 2005Q2

REPORT INFORMATION
  Report Type: 
  Country: None (occurrence: None)
  Receive Date: 20050204
  Receipt Date: 20041015
  Transmission Date: 20051028
  Serious: Yes (Other)
  Sender: FDA-Public Use
  Company Number: PHEH2004US11115

PATIENT
  Age: 52 Year
  Sex: Male

DRUGS (3)
  1. CLOZARIL [Suspect]
     Indication: PSYCHOTIC DISORDER
     Dosage: 75MG QAM, 75 MG QPM, 150 MGQHS, ORAL
     Route: 048
     Dates: start: 20010101, end: 20040901
  2. ESKALITH [Concomitant]
  3. CLOZAPINE [Suspect]
     Indication: PSYCHOTIC DISORDER
     Dosage: 75 MG QAM,75 MG QPM,150 MGQHS,ORAL
     Route: 048
     Dates: start: 20040901

REACTIONS (1)
  - HALLUCINATION, AUDITORY [None]
